FAERS Safety Report 8718857 (Version 2)
Quarter: 2013Q4

REPORT INFORMATION
  Report Type: Spontaneous
  Country: US (occurrence: US)
  Receive Date: 20120810
  Receipt Date: 20131101
  Transmission Date: 20140711
  Serious: No
  Sender: FDA-Public Use
  Company Number: US-009507513-1207USA011987

PATIENT
  Sex: Female

DRUGS (5)
  1. NASONEX [Suspect]
     Dosage: UNK
     Route: 045
  2. CELEBREX [Suspect]
  3. TRICOR (ADENOSINE) [Suspect]
  4. WELCHOL [Suspect]
     Dosage: 625 MG, BID
     Route: 048
  5. VIOXX [Suspect]

REACTIONS (1)
  - Drug hypersensitivity [Unknown]
